FAERS Safety Report 21906898 (Version 1)
Quarter: 2023Q1

REPORT INFORMATION
  Report Type: Spontaneous
  Country: GR (occurrence: GR)
  Receive Date: 20230125
  Receipt Date: 20230125
  Transmission Date: 20230418
  Serious: Yes (Other)
  Sender: FDA-Public Use
  Company Number: GR-CELLTRION INC.-2023GR001303

PATIENT

DRUGS (1)
  1. INFLIXIMAB [Suspect]
     Active Substance: INFLIXIMAB
     Indication: Rheumatoid arthritis
     Dosage: 3X100 MG EVERY 8 WEEKS
     Dates: start: 20221120

REACTIONS (3)
  - COVID-19 [Unknown]
  - Intentional dose omission [Unknown]
  - Overdose [Unknown]
